FAERS Safety Report 20200164 (Version 2)
Quarter: 2022Q1

REPORT INFORMATION
  Report Type: Spontaneous
  Country: US (occurrence: US)
  Receive Date: 20211217
  Receipt Date: 20220322
  Transmission Date: 20220423
  Serious: No
  Sender: FDA-Public Use
  Company Number: US-NOVOPROD-851585

PATIENT
  Age: 54 Year
  Sex: Female

DRUGS (1)
  1. WEGOVY [Suspect]
     Active Substance: SEMAGLUTIDE
     Indication: Obesity
     Dosage: 0.25 MG
     Route: 058
     Dates: start: 20210819

REACTIONS (4)
  - Injection site pain [Recovered/Resolved]
  - Injection site bruising [Recovered/Resolved]
  - Product contamination with body fluid [Unknown]
  - Device malfunction [Unknown]

NARRATIVE: CASE EVENT DATE: 20210901
